FAERS Safety Report 14531526 (Version 1)
Quarter: 2018Q1

REPORT INFORMATION
  Report Type: Report from Study
  Country: US (occurrence: US)
  Receive Date: 20180214
  Receipt Date: 20180214
  Transmission Date: 20180509
  Serious: Yes (Other)
  Sender: FDA-Public Use
  Company Number: US-ASTRAZENECA-2016SE51974

PATIENT
  Age: 53 Year
  Sex: Female

DRUGS (2)
  1. SEROQUEL [Interacting]
     Active Substance: QUETIAPINE FUMARATE
     Route: 048
  2. LYNPARZA [Suspect]
     Active Substance: OLAPARIB
     Indication: OVARIAN CANCER
     Route: 048
     Dates: start: 20160502, end: 2017

REACTIONS (12)
  - Malignant neoplasm progression [Unknown]
  - Insomnia [Not Recovered/Not Resolved]
  - Carbohydrate antigen 125 increased [Unknown]
  - Metastases to retroperitoneum [Unknown]
  - Drug interaction [Not Recovered/Not Resolved]
  - Arthralgia [Recovered/Resolved]
  - Fatigue [Not Recovered/Not Resolved]
  - Product use in unapproved indication [Unknown]
  - Metastases to abdominal cavity [Unknown]
  - Vaginal infection [Not Recovered/Not Resolved]
  - Swelling face [Not Recovered/Not Resolved]
  - Off label use [Unknown]

NARRATIVE: CASE EVENT DATE: 2016
